FAERS Safety Report 25456732 (Version 1)
Quarter: 2025Q2

REPORT INFORMATION
  Report Type: Spontaneous
  Country: US (occurrence: US)
  Receive Date: 20250619
  Receipt Date: 20250619
  Transmission Date: 20250716
  Serious: No
  Sender: GALPHARM INTERNATIONAL
  Company Number: US-PERRIGO-24US006742

PATIENT
  Sex: Female
  Weight: 72.562 kg

DRUGS (2)
  1. DIPHENHYDRAMINE HYDROCHLORIDE\NAPROXEN SODIUM [Suspect]
     Active Substance: DIPHENHYDRAMINE HYDROCHLORIDE\NAPROXEN SODIUM
     Indication: Back pain
     Route: 048
  2. DUPIXENT [Concomitant]
     Active Substance: DUPILUMAB
     Indication: Eczema
     Route: 065
     Dates: start: 20240604

REACTIONS (1)
  - Nightmare [Recovered/Resolved]
